FAERS Safety Report 7107004-9 (Version None)
Quarter: 2010Q4

REPORT INFORMATION
  Report Type: 
  Country: None (occurrence: None)
  Receive Date: 20101116
  Receipt Date: 20101110
  Transmission Date: 20110411
  Serious: No
  Sender: FDA-Public Use
  Company Number: US-ABBOTT-10P-163-0684254-00

PATIENT
  Sex: Female
  Weight: 46.762 kg

DRUGS (3)
  1. SIMCOR [Suspect]
     Indication: HYPERLIPIDAEMIA
     Dosage: 500/40MG AT BEDTIME
  2. SIMCOR [Suspect]
     Indication: HYPERLIPIDAEMIA
     Dosage: 1000/40MG AT BEDTIME
     Dates: start: 20101105
  3. UNKNOWN BLOOD PRESSURE MEDICATION [Concomitant]
     Indication: PRODUCT USED FOR UNKNOWN INDICATION

REACTIONS (4)
  - CONTUSION [None]
  - DRUG DOSE OMISSION [None]
  - PRURITUS [None]
  - SKIN HAEMORRHAGE [None]
